FAERS Safety Report 22191348 (Version 1)
Quarter: 2023Q2

REPORT INFORMATION
  Report Type: Spontaneous
  Country: US (occurrence: None)
  Receive Date: 20230407
  Receipt Date: 20230407
  Transmission Date: 20230722
  Serious: Yes (Other)
  Sender: FDA-Public Use
  Company Number: None

PATIENT
  Age: 8 Year
  Sex: Male

DRUGS (5)
  1. POLYETHYLENE GLYCOL 3350 [Suspect]
     Active Substance: POLYETHYLENE GLYCOL 3350
  2. Vitamin d [Concomitant]
  3. VITAMIN C [Concomitant]
     Active Substance: ASCORBIC ACID
  4. Multi w iron [Concomitant]
  5. CALCIUM [Concomitant]
     Active Substance: CALCIUM

REACTIONS (16)
  - Vomiting [None]
  - Weight increased [None]
  - Positive airway pressure therapy [None]
  - Paraesthesia [None]
  - Neck pain [None]
  - Oropharyngeal pain [None]
  - Angina pectoris [None]
  - Headache [None]
  - Screaming [None]
  - Hepatic pain [None]
  - Renal pain [None]
  - Arthralgia [None]
  - Laboratory test interference [None]
  - Encephalopathy [None]
  - Neonatal hypoxia [None]
  - Hyperbilirubinaemia neonatal [None]

NARRATIVE: CASE EVENT DATE: 20230119
